FAERS Safety Report 23836996 (Version 2)
Quarter: 2025Q1

REPORT INFORMATION
  Report Type: Report from Study
  Country: CA (occurrence: CA)
  Receive Date: 20240509
  Receipt Date: 20250310
  Transmission Date: 20250409
  Serious: Yes (Death)
  Sender: SERVIER
  Company Number: CA-SERVIER-S21001087

PATIENT

DRUGS (1)
  1. PEGASPARGASE [Suspect]
     Active Substance: PEGASPARGASE
     Indication: Acute lymphocytic leukaemia
     Route: 065

REACTIONS (4)
  - Thrombosis [Fatal]
  - Pancreatitis acute [Fatal]
  - Liver disorder [Fatal]
  - Hypertriglyceridaemia [Fatal]

NARRATIVE: CASE EVENT DATE: 20200101
